FAERS Safety Report 23376933 (Version 2)
Quarter: 2024Q1

REPORT INFORMATION
  Report Type: Report from Study
  Country: GB (occurrence: GB)
  Receive Date: 20240108
  Receipt Date: 20240130
  Transmission Date: 20240410
  Serious: Yes (Other)
  Sender: FDA-Public Use
  Company Number: GB-002147023-NVSC2023GB157114

PATIENT
  Sex: Female

DRUGS (2)
  1. KESIMPTA [Suspect]
     Active Substance: OFATUMUMAB
     Indication: Multiple sclerosis
     Dosage: UNK
     Route: 058
     Dates: start: 20230707
  2. KESIMPTA [Suspect]
     Active Substance: OFATUMUMAB
     Dosage: QMO
     Route: 058
     Dates: start: 20240119

REACTIONS (11)
  - Lower respiratory tract infection [Unknown]
  - Cough [Unknown]
  - Pyrexia [Unknown]
  - Pain [Unknown]
  - Tremor [Recovering/Resolving]
  - Neck pain [Not Recovered/Not Resolved]
  - Feeling cold [Recovering/Resolving]
  - Heavy menstrual bleeding [Recovered/Resolved]
  - Dizziness [Recovering/Resolving]
  - Arthralgia [Not Recovered/Not Resolved]
  - Pain in extremity [Unknown]

NARRATIVE: CASE EVENT DATE: 20230707
